FAERS Safety Report 5223035-8 (Version None)
Quarter: 2007Q1

REPORT INFORMATION
  Report Type: 
  Country: None (occurrence: None)
  Receive Date: 20070124
  Receipt Date: 20070110
  Transmission Date: 20070707
  Serious: Yes (Life-Threatening, Hospitalization, Other)
  Sender: FDA-Public Use
  Company Number: 2007RR-05265

PATIENT
  Age: 80 Year
  Sex: Male
  Weight: 79.5 kg

DRUGS (9)
  1. PARACETAMOL(PARACETAMOL) UNKNOWN [Suspect]
     Dosage: 500 MG, ORAL
     Route: 048
  2. ASPIRIN [Concomitant]
  3. COMBIVENT [Concomitant]
  4. FUROSEMIDE [Concomitant]
  5. RAMIPRIL [Concomitant]
  6. SIMVASTATIN [Concomitant]
  7. STILBOESTROL [Concomitant]
  8. SYMBICORT [Concomitant]
  9. VENTOLIN [Concomitant]

REACTIONS (4)
  - AGGRESSION [None]
  - ANAPHYLACTIC REACTION [None]
  - DRUG INEFFECTIVE [None]
  - SWOLLEN TONGUE [None]
